FAERS Safety Report 9769653 (Version 1)
Quarter: 2013Q4

REPORT INFORMATION
  Report Type: Spontaneous
  Country: US (occurrence: US)
  Receive Date: 20131218
  Receipt Date: 20131218
  Transmission Date: 20140711
  Serious: Yes (Hospitalization, Disabling, Other)
  Sender: FDA-Public Use
  Company Number: CHPA2013US018380

PATIENT
  Sex: Female

DRUGS (1)
  1. EXCEDRIN UNKNOWN [Suspect]

REACTIONS (18)
  - Convulsion [Unknown]
  - Incoherent [Unknown]
  - Road traffic accident [Unknown]
  - Injury [Not Recovered/Not Resolved]
  - Movement disorder [Unknown]
  - Nervous system disorder [Unknown]
  - Activities of daily living impaired [Unknown]
  - Opiates positive [Unknown]
  - Urinary incontinence [Unknown]
  - Foaming at mouth [Unknown]
  - Tongue haemorrhage [Unknown]
  - Lip haemorrhage [Unknown]
  - Faecal incontinence [Unknown]
  - Tongue biting [Unknown]
  - Bite [Unknown]
  - Emotional distress [Not Recovered/Not Resolved]
  - Pain [Not Recovered/Not Resolved]
  - Neuralgia [Not Recovered/Not Resolved]
